FAERS Safety Report 15128916 (Version 1)
Quarter: 2018Q3

REPORT INFORMATION
  Report Type: Spontaneous
  Country: US (occurrence: US)
  Receive Date: 20180711
  Receipt Date: 20180711
  Transmission Date: 20181010
  Serious: Yes (Hospitalization)
  Sender: FDA-Public Use
  Company Number: US-DRREDDYS-USA/USA/18/0101823

PATIENT
  Age: 81 Year
  Sex: Male

DRUGS (1)
  1. SEVELAMER CARBONATE TABLETS, 800 MG [Suspect]
     Active Substance: SEVELAMER CARBONATE
     Indication: END STAGE RENAL DISEASE
     Route: 065

REACTIONS (5)
  - Duodenal ulcer [Recovered/Resolved]
  - Duodenitis [Recovered/Resolved]
  - Colitis [Recovered/Resolved]
  - Gastroenteritis [Recovered/Resolved]
  - Haematochezia [Recovered/Resolved]
